FAERS Safety Report 6299909-6 (Version None)
Quarter: 2009Q3

REPORT INFORMATION
  Report Type: 
  Country: None (occurrence: None)
  Receive Date: 20090806
  Receipt Date: 20090803
  Transmission Date: 20100115
  Serious: Yes (Life-Threatening, Hospitalization)
  Sender: FDA-Public Use
  Company Number: PHHY2009FR30050

PATIENT
  Sex: Male

DRUGS (14)
  1. CERTICAN [Suspect]
     Indication: HEART TRANSPLANT
     Dosage: 1.25 MG, QD
     Route: 048
     Dates: start: 20090301, end: 20090618
  2. CERTICAN [Suspect]
     Indication: PROPHYLAXIS AGAINST TRANSPLANT REJECTION
  3. TRIATEC [Suspect]
     Dosage: 5 MG, BID
     Route: 048
     Dates: end: 20090618
  4. CELLCEPT [Concomitant]
     Dosage: 500 MG, TID
  5. NEORAL [Concomitant]
     Dosage: 160 MG, QD
     Route: 048
  6. SOLUPRED [Concomitant]
     Dosage: 5 MG, QD
  7. LYRICA [Concomitant]
     Dosage: 100 MG, BID
  8. FONZYLANE [Concomitant]
     Dosage: 300 MG, BID
  9. NEXIUM [Concomitant]
  10. TEMERIT [Concomitant]
     Dosage: 5 MG, QD
  11. CRESTOR [Concomitant]
     Dosage: 5 MG, QD
  12. PLAVIX [Concomitant]
     Dosage: 1 DF, QD
  13. KARDEGIC [Concomitant]
     Dosage: 75 MG, QD
  14. LERCAN [Concomitant]

REACTIONS (2)
  - ANGIOEDEMA [None]
  - DYSPNOEA [None]
